FAERS Safety Report 20192898 (Version 1)
Quarter: 2021Q4

REPORT INFORMATION
  Report Type: Spontaneous
  Country: TW (occurrence: TW)
  Receive Date: 20211216
  Receipt Date: 20211216
  Transmission Date: 20220303
  Serious: Yes (Other)
  Sender: FDA-Public Use
  Company Number: None

PATIENT
  Age: 58 Year
  Sex: Male

DRUGS (4)
  1. PREDNISOLONE [Suspect]
     Active Substance: PREDNISOLONE
     Indication: Glomerulonephritis chronic
     Dosage: 15 MILLIGRAM, PER DAY, FOR MORE THAN 5 YEARS
     Route: 048
  2. PREDNISOLONE [Suspect]
     Active Substance: PREDNISOLONE
     Indication: Nephrotic syndrome
  3. AZATHIOPRINE [Suspect]
     Active Substance: AZATHIOPRINE
     Indication: Glomerulonephritis chronic
     Dosage: 25 MILLIGRAM, PER DAY, FOR MORE THAN 5 YEARS
     Route: 048
  4. AZATHIOPRINE [Suspect]
     Active Substance: AZATHIOPRINE
     Indication: Nephrotic syndrome

REACTIONS (8)
  - Retinal artery occlusion [Unknown]
  - Retinal haemorrhage [Unknown]
  - Macular hole [Unknown]
  - Vitritis [Recovered/Resolved]
  - Necrotising retinitis [Recovered/Resolved]
  - Corneal endotheliitis [Recovered/Resolved]
  - Cytomegalovirus chorioretinitis [Recovered/Resolved]
  - Off label use [Unknown]
